FAERS Safety Report 16720474 (Version 1)
Quarter: 2019Q4

REPORT INFORMATION
  Report Type: Spontaneous
  Country: US (occurrence: US)
  Receive Date: 20190819
  Receipt Date: 20190819
  Transmission Date: 20200122
  Serious: Yes (Other)
  Sender: FDA-Public Use
  Company Number: None

PATIENT
  Age: 69 Year
  Sex: Male
  Weight: 70.65 kg

DRUGS (22)
  1. HYDROCHLOROTHIAZIDE. [Concomitant]
     Active Substance: HYDROCHLOROTHIAZIDE
  2. MELPHALAN. [Concomitant]
     Active Substance: MELPHALAN
  3. DIPHENHYDRAMINE. [Concomitant]
     Active Substance: DIPHENHYDRAMINE
  4. MONTELUKAST [Concomitant]
     Active Substance: MONTELUKAST SODIUM
  5. MELPHALAN 2 MG TABLET [Suspect]
     Active Substance: MELPHALAN
     Indication: AMYLOIDOSIS
     Dosage: ?          OTHER FREQUENCY:DAILY DAYS 1-4/28;?
     Route: 048
     Dates: start: 20190326
  6. BENICAR [Concomitant]
     Active Substance: OLMESARTAN MEDOXOMIL
  7. ALBUTROL [Concomitant]
  8. COLCHICINE. [Concomitant]
     Active Substance: COLCHICINE
  9. VITAMIN B COMPLEX [Concomitant]
     Active Substance: CYANOCOBALAMIN\DEXPANTHENOL\NIACINAMIDE\PYRIDOXINE HYDROCHLORIDE\RIBOFLAVIN 5^-PHOSPHATE SODIUM\THIAMINE HYDROCHLORIDE\VITAMIN B COMPLEX
  10. CALCIUM [Concomitant]
     Active Substance: CALCIUM
  11. CLONIDINE. [Concomitant]
     Active Substance: CLONIDINE
  12. DARZALEX [Concomitant]
     Active Substance: DARATUMUMAB
  13. DULERA [Concomitant]
     Active Substance: FORMOTEROL FUMARATE DIHYDRATE\MOMETASONE FUROATE
  14. FUROSEMIDE. [Concomitant]
     Active Substance: FUROSEMIDE
  15. MIRALAX [Concomitant]
     Active Substance: POLYETHYLENE GLYCOL 3350
  16. ASPIRIN. [Concomitant]
     Active Substance: ASPIRIN
  17. CARVEDILOL. [Concomitant]
     Active Substance: CARVEDILOL
  18. IRBESARTAN. [Concomitant]
     Active Substance: IRBESARTAN
  19. AMLODIPINE [Concomitant]
     Active Substance: AMLODIPINE BESYLATE
  20. LOSARTAN. [Concomitant]
     Active Substance: LOSARTAN
  21. DEXAMETHASONE. [Concomitant]
     Active Substance: DEXAMETHASONE
  22. DOCUSATE [Concomitant]
     Active Substance: DOCUSATE

REACTIONS (1)
  - Hospice care [None]
